FAERS Safety Report 6886859-7 (Version None)
Quarter: 2010Q3

REPORT INFORMATION
  Report Type: 
  Country: None (occurrence: None)
  Receive Date: 20100729
  Receipt Date: 20100729
  Transmission Date: 20110219
  Serious: Yes (Other)
  Sender: FDA-Public Use
  Company Number: None

PATIENT
  Age: 37 Year
  Sex: Female
  Weight: 163.2949 kg

DRUGS (1)
  1. ADAPALINE 0.1% [Suspect]
     Indication: ACNE
     Dosage: APPLY TO FACE EVERY EVENING AT BEDTIME EVERY EVENING TOPICAL
     Route: 061
     Dates: start: 20100701

REACTIONS (1)
  - SKIN IRRITATION [None]
